FAERS Safety Report 6856644-0 (Version None)
Quarter: 2010Q3

REPORT INFORMATION
  Report Type: 
  Country: None (occurrence: None)
  Receive Date: 20100719
  Receipt Date: 20100713
  Transmission Date: 20110219
  Serious: Yes (Hospitalization, Disabling)
  Sender: FDA-Public Use
  Company Number: US-MERCK-1003USA04015

PATIENT
  Age: 72 Year
  Sex: Female

DRUGS (1)
  1. FOSAMAX [Suspect]
     Indication: OSTEOPOROSIS
     Route: 048
     Dates: start: 20010601, end: 20070701

REACTIONS (9)
  - ARTHRITIS [None]
  - BLADDER IRRITATION [None]
  - BLOOD CHOLESTEROL INCREASED [None]
  - BONE DISORDER [None]
  - FEMUR FRACTURE [None]
  - FRACTURE NONUNION [None]
  - HYPERTENSION [None]
  - LOW TURNOVER OSTEOPATHY [None]
  - STRESS FRACTURE [None]
